FAERS Safety Report 9825046 (Version 1)
Quarter: 2013Q4

REPORT INFORMATION
  Report Type: Spontaneous
  Country: US (occurrence: None)
  Receive Date: 20131030
  Receipt Date: 20131030
  Transmission Date: 20140711
  Serious: Yes (Hospitalization)
  Sender: FDA-Public Use
  Company Number: 366943

PATIENT
  Age: 63 Year
  Sex: Female
  Weight: 49.4 kg

DRUGS (3)
  1. VAGIFERN (ESTRADIOL HEMIHYDRATE) [Suspect]
     Indication: VULVOVAGINAL DRYNESS
     Dosage: UNK, VAGINAL
     Route: 067
     Dates: start: 2006
  2. VAGIFERN [Suspect]
     Dosage: UNK, VAGINAL
     Route: 067
     Dates: end: 201212
  3. SYNTHROID (LEVOTHYROXINE SODIUM) [Concomitant]

REACTIONS (1)
  - Thrombosis [None]
